FAERS Safety Report 12591463 (Version 2)
Quarter: 2016Q3

REPORT INFORMATION
  Report Type: Spontaneous
  Country: US (occurrence: US)
  Receive Date: 20160726
  Receipt Date: 20160726
  Transmission Date: 20161109
  Serious: No
  Sender: FDA-Public Use
  Company Number: US-UNITED THERAPEUTICS-UNT-2016-000513

PATIENT
  Age: 59 Year
  Sex: Female
  Weight: 61.68 kg

DRUGS (1)
  1. REMODULIN [Suspect]
     Active Substance: TREPROSTINIL
     Indication: PULMONARY HYPERTENSION
     Dosage: 0.037 ?G/KG, CONTINUING
     Route: 058
     Dates: start: 20091208

REACTIONS (6)
  - Drug dose omission [Unknown]
  - Mood altered [Unknown]
  - Fatigue [Unknown]
  - Headache [Unknown]
  - Asthenia [Unknown]
  - Device issue [Unknown]

NARRATIVE: CASE EVENT DATE: 201512
